FAERS Safety Report 14081448 (Version 1)
Quarter: 2017Q4

REPORT INFORMATION
  Report Type: Spontaneous
  Country: US (occurrence: US)
  Receive Date: 20171013
  Receipt Date: 20171013
  Transmission Date: 20180321
  Serious: Yes (Other)
  Sender: FDA-Public Use
  Company Number: US-APOTEX-2017AP020137

PATIENT
  Age: 45 Year
  Sex: Female

DRUGS (10)
  1. HYDROXYCHLOROQUINE [Suspect]
     Active Substance: HYDROXYCHLOROQUINE
     Indication: DERMATOMYOSITIS
     Dosage: UNK
     Route: 065
  2. METHOTREXATE. [Suspect]
     Active Substance: METHOTREXATE
     Indication: DERMATOMYOSITIS
     Dosage: UNK
     Route: 065
  3. AZATHIOPRINE. [Suspect]
     Active Substance: AZATHIOPRINE
     Indication: DERMATOMYOSITIS
     Dosage: UNK
     Route: 065
  4. DAPSONE. [Suspect]
     Active Substance: DAPSONE
     Indication: DERMATOMYOSITIS
     Dosage: UNK
     Route: 065
  5. MYCOPHENOLATE MOFETIL. [Suspect]
     Active Substance: MYCOPHENOLATE MOFETIL
     Indication: DERMATOMYOSITIS
     Dosage: UNK
     Route: 065
  6. ACITRETIN. [Suspect]
     Active Substance: ACITRETIN
     Indication: DERMATOMYOSITIS
     Dosage: UNK
     Route: 065
  7. PREDNISONE. [Suspect]
     Active Substance: PREDNISONE
     Indication: DERMATOMYOSITIS
     Dosage: UNK
     Route: 065
  8. PENTOXIFYLLINE. [Suspect]
     Active Substance: PENTOXIFYLLINE
     Indication: DERMATOMYOSITIS
     Route: 065
  9. RITUXIMAB. [Suspect]
     Active Substance: RITUXIMAB
     Indication: DERMATOMYOSITIS
     Dosage: 2 DF, UNK
     Route: 042
  10. USTEKINUMAB [Suspect]
     Active Substance: USTEKINUMAB
     Indication: DERMATOMYOSITIS
     Dosage: 1 DF, UNK
     Route: 050

REACTIONS (1)
  - Treatment failure [Unknown]
